FAERS Safety Report 17520279 (Version 3)
Quarter: 2020Q2

REPORT INFORMATION
  Report Type: Spontaneous
  Country: IT (occurrence: IT)
  Receive Date: 20200309
  Receipt Date: 20200429
  Transmission Date: 20200713
  Serious: Yes (Other)
  Sender: FDA-Public Use
  Company Number: IT-AMGEN-ITASP2020037881

PATIENT
  Age: 63 Year
  Sex: Female

DRUGS (10)
  1. METHOTREXATE. [Suspect]
     Active Substance: METHOTREXATE
     Indication: CRYOGLOBULINAEMIA
  2. TRUXIMA [Suspect]
     Active Substance: RITUXIMAB-ABBS
     Indication: RHEUMATOID ARTHRITIS
     Dosage: 1000 MG EVERY OTHER WEEK
     Route: 065
  3. PARACETAMOL [Concomitant]
     Active Substance: ACETAMINOPHEN
     Dosage: UNK
  4. TRUXIMA [Suspect]
     Active Substance: RITUXIMAB-ABBS
     Indication: CRYOGLOBULINAEMIA
     Dosage: 1000 MILLIGRAM, (EVERY OTHER WEEK)
     Route: 065
  5. TRUXIMA [Suspect]
     Active Substance: RITUXIMAB-ABBS
     Indication: CRYOGLOBULINAEMIA
     Dosage: UNK UNK, UNK
     Route: 065
  6. METHOTREXATE. [Suspect]
     Active Substance: METHOTREXATE
     Indication: RHEUMATOID ARTHRITIS
     Dosage: 10 MILLIGRAM, QWK
     Route: 065
  7. METHOTREXATE. [Suspect]
     Active Substance: METHOTREXATE
     Indication: CRYOGLOBULINAEMIA
  8. METHOTREXATE SODIUM. [Suspect]
     Active Substance: METHOTREXATE SODIUM
     Indication: PRODUCT USED FOR UNKNOWN INDICATION
     Dosage: 10 MG, WEEKLY
     Route: 065
  9. PARACETAMOL [Concomitant]
     Active Substance: ACETAMINOPHEN
     Indication: PREMEDICATION
     Dosage: UNK
  10. ENBREL [Suspect]
     Active Substance: ETANERCEPT
     Indication: PRODUCT USED FOR UNKNOWN INDICATION
     Dosage: 50 MG, WEEKLY
     Route: 065

REACTIONS (4)
  - Disease recurrence [Recovered/Resolved]
  - Cryoglobulinaemia [Recovered/Resolved]
  - Hypersensitivity vasculitis [Recovered/Resolved]
  - Drug ineffective [Unknown]
